FAERS Safety Report 17969415 (Version 2)
Quarter: 2020Q3

REPORT INFORMATION
  Report Type: Spontaneous
  Country: US (occurrence: US)
  Receive Date: 20200701
  Receipt Date: 20200708
  Transmission Date: 20201103
  Serious: Yes (Other)
  Sender: FDA-Public Use
  Company Number: US-PFIZER INC-2020250797

PATIENT
  Sex: Female

DRUGS (1)
  1. METHYLPREDNISOLONE. [Suspect]
     Active Substance: METHYLPREDNISOLONE
     Indication: RHEUMATOID ARTHRITIS
     Dosage: UNK (3 DOSE PACKS)

REACTIONS (8)
  - Dyspnoea [Recovered/Resolved]
  - Swelling face [Unknown]
  - Lung carcinoma cell type unspecified stage I [Recovered/Resolved]
  - Cushingoid [Unknown]
  - Exercise tolerance decreased [Unknown]
  - Weight increased [Unknown]
  - Hunger [Unknown]
  - Immune system disorder [Unknown]
